FAERS Safety Report 6693340-7 (Version None)
Quarter: 2010Q2

REPORT INFORMATION
  Report Type: 
  Country: None (occurrence: None)
  Receive Date: 20100420
  Receipt Date: 20100408
  Transmission Date: 20101027
  Serious: Yes (Other)
  Sender: FDA-Public Use
  Company Number: 7000778

PATIENT
  Sex: Male

DRUGS (7)
  1. SEROSTIM [Suspect]
     Indication: HIV WASTING SYNDROME
  2. LEXIA (FOSAMPRENAVIR) [Concomitant]
  3. EPZICOM (ABACAVIR W/LAMIVUDINE) [Concomitant]
  4. SYNTHROID [Concomitant]
  5. KLONOPIN [Concomitant]
  6. PROZAC [Concomitant]
  7. WELLBUTRIN [Concomitant]

REACTIONS (3)
  - CONVULSION [None]
  - FEELING HOT [None]
  - REFUSAL OF TREATMENT BY PATIENT [None]
